FAERS Safety Report 13753878 (Version 1)
Quarter: 2017Q3

REPORT INFORMATION
  Report Type: Spontaneous
  Country: US (occurrence: US)
  Receive Date: 20170714
  Receipt Date: 20170714
  Transmission Date: 20171127
  Serious: No
  Sender: FDA-Public Use
  Company Number: US-ELI_LILLY_AND_COMPANY-US201707002922

PATIENT
  Sex: Male

DRUGS (5)
  1. BASAGLAR [Suspect]
     Active Substance: INSULIN GLARGINE
     Dosage: 5 MG, EACH EVENING
  2. BASAGLAR [Suspect]
     Active Substance: INSULIN GLARGINE
     Dosage: 8 IU, EACH MORNING
     Dates: start: 20170705, end: 20170705
  3. BASAGLAR [Suspect]
     Active Substance: INSULIN GLARGINE
     Dosage: 7 IU, EACH MORNING
     Dates: start: 20170706, end: 20170706
  4. BASAGLAR [Suspect]
     Active Substance: INSULIN GLARGINE
     Dosage: 4 MG, EACH EVENING
     Dates: start: 20170705, end: 20170705
  5. BASAGLAR [Suspect]
     Active Substance: INSULIN GLARGINE
     Indication: PRODUCT USED FOR UNKNOWN INDICATION
     Dosage: 10 IU, EACH MORNING

REACTIONS (2)
  - Hypoglycaemia [Recovered/Resolved]
  - Tremor [Recovered/Resolved]
